FAERS Safety Report 26142979 (Version 1)
Quarter: 2025Q4

REPORT INFORMATION
  Report Type: Spontaneous
  Country: GB (occurrence: GB)
  Receive Date: 20251211
  Receipt Date: 20251211
  Transmission Date: 20260119
  Serious: Yes (Life-Threatening, Other)
  Sender: ROCHE
  Company Number: GB-ROCHE-10000455866

PATIENT
  Age: 24 Year
  Sex: Male

DRUGS (6)
  1. RITUXIMAB [Suspect]
     Active Substance: RITUXIMAB
     Indication: Anti-neutrophil cytoplasmic antibody positive vasculitis
  2. METHYLPREDNISOLONE [Concomitant]
     Active Substance: METHYLPREDNISOLONE
  3. PREDNISOLONE [Concomitant]
     Active Substance: PREDNISOLONE
  4. AVACOPAN [Concomitant]
     Active Substance: AVACOPAN
  5. OBINUTUZUMAB [Concomitant]
     Active Substance: OBINUTUZUMAB
  6. METHOTREXATE [Concomitant]
     Active Substance: METHOTREXATE

REACTIONS (3)
  - Cardiac arrest [Unknown]
  - Pulmonary embolism [Unknown]
  - Hypersensitivity [Unknown]
